FAERS Safety Report 5333824-7 (Version None)
Quarter: 2007Q2

REPORT INFORMATION
  Report Type: 
  Country: None (occurrence: None)
  Receive Date: 20070524
  Receipt Date: 20070522
  Transmission Date: 20071010
  Serious: Yes (Disabling)
  Sender: FDA-Public Use
  Company Number: DK-ASTRAZENECA-2007SE02806

PATIENT
  Age: 748 Month
  Sex: Female

DRUGS (5)
  1. SELO-ZOK [Suspect]
     Route: 048
     Dates: start: 20040101, end: 20070508
  2. ACTIVELLE [Concomitant]
  3. CENTYL MITE [Concomitant]
  4. DAIVOBET [Concomitant]
  5. NARAGRAN [Concomitant]

REACTIONS (2)
  - PSORIASIS [None]
  - PSORIATIC ARTHROPATHY [None]
